FAERS Safety Report 9472353 (Version 4)
Quarter: 2014Q2

REPORT INFORMATION
  Report Type: Report from Study
  Country: CA (occurrence: CA)
  Receive Date: 20130823
  Receipt Date: 20140424
  Transmission Date: 20141212
  Serious: Yes (Other)
  Sender: FDA-Public Use
  Company Number: CA-JNJFOC-20130610310

PATIENT
  Age: 53 Year
  Sex: Female
  Weight: 60.8 kg

DRUGS (10)
  1. REMICADE [Suspect]
     Indication: CROHN^S DISEASE
     Route: 042
  2. REMICADE [Suspect]
     Indication: CROHN^S DISEASE
     Route: 042
  3. REMICADE [Suspect]
     Indication: CROHN^S DISEASE
     Route: 042
     Dates: start: 201303
  4. FOLIC ACID [Concomitant]
     Route: 065
  5. CIPRALEX [Concomitant]
     Route: 065
  6. RABEPRAZOLE [Concomitant]
     Route: 065
  7. GABAPENTINE [Concomitant]
     Route: 065
  8. FLAGYL [Concomitant]
     Route: 065
  9. VITAMIN B-12 INJECTIONS [Concomitant]
     Route: 065
  10. METHOTREXATE [Concomitant]
     Route: 065

REACTIONS (7)
  - Fistula [Unknown]
  - Psoriasis [Not Recovered/Not Resolved]
  - Arthritis [Not Recovered/Not Resolved]
  - Muscle spasms [Not Recovered/Not Resolved]
  - Eye infection [Recovered/Resolved]
  - Crohn^s disease [Unknown]
  - Skin disorder [Unknown]
